FAERS Safety Report 16138126 (Version 1)
Quarter: 2019Q1

REPORT INFORMATION
  Report Type: Spontaneous
  Country: ES (occurrence: ES)
  Receive Date: 20190330
  Receipt Date: 20190330
  Transmission Date: 20190418
  Serious: Yes (Hospitalization)
  Sender: FDA-Public Use
  Company Number: ES-ACCORD-116355

PATIENT
  Age: 75 Year
  Sex: Male

DRUGS (1)
  1. FUROSEMIDE. [Suspect]
     Active Substance: FUROSEMIDE
     Indication: FLUID RETENTION
     Route: 042
     Dates: start: 20181120, end: 20181127

REACTIONS (1)
  - Metabolic alkalosis [Recovered/Resolved]

NARRATIVE: CASE EVENT DATE: 20181124
